FAERS Safety Report 8078370-5 (Version None)
Quarter: 2012Q1

REPORT INFORMATION
  Report Type: 
  Country: None (occurrence: None)
  Receive Date: 20120123
  Receipt Date: 20120109
  Transmission Date: 20120608
  Serious: Yes (Hospitalization, Other)
  Sender: FDA-Public Use
  Company Number: 2012MA000362

PATIENT
  Sex: Male

DRUGS (9)
  1. TRICOR [Concomitant]
  2. AMARYL [Concomitant]
  3. AVANDIA [Concomitant]
  4. LISINOPRIL [Concomitant]
  5. SIMVASTATIN [Concomitant]
  6. ASPIRIN [Concomitant]
  7. METFORMIN HCL [Concomitant]
  8. DIGOXIN [Suspect]
     Dosage: 0.25 MG; QD; PO
     Route: 048
     Dates: start: 20050513, end: 20080426
  9. INDOCIN [Concomitant]

REACTIONS (23)
  - SLEEP APNOEA SYNDROME [None]
  - HEART RATE IRREGULAR [None]
  - RESPIRATORY DISTRESS [None]
  - STAPHYLOCOCCAL INFECTION [None]
  - METABOLIC SYNDROME [None]
  - SINUS TACHYCARDIA [None]
  - WOUND INFECTION [None]
  - ATRIAL FLUTTER [None]
  - WHITE BLOOD CELL COUNT INCREASED [None]
  - ELECTROCARDIOGRAM QRS COMPLEX PROLONGED [None]
  - CHEST PAIN [None]
  - POLIOMYELITIS [None]
  - BLOOD PRESSURE INCREASED [None]
  - PERICARDIAL EFFUSION [None]
  - PLEURISY [None]
  - PLEURITIC PAIN [None]
  - CHEST DISCOMFORT [None]
  - PNEUMONIA [None]
  - ARRHYTHMIA [None]
  - HYPERTENSION [None]
  - TYPE 2 DIABETES MELLITUS [None]
  - DYSPNOEA [None]
  - PERICARDITIS [None]
